FAERS Safety Report 20220737 (Version 2)
Quarter: 2022Q1

REPORT INFORMATION
  Report Type: Report from Study
  Country: US (occurrence: US)
  Receive Date: 20211223
  Receipt Date: 20220110
  Transmission Date: 20220423
  Serious: Yes (Death)
  Sender: FDA-Public Use
  Company Number: US-BAUSCH-BL-2021-042024

PATIENT
  Age: 78 Year
  Sex: Female

DRUGS (1)
  1. XIFAXAN [Suspect]
     Active Substance: RIFAXIMIN
     Indication: Liver disorder
     Dosage: 18/AUG/2021 PATIENT WAS GIVEN 3 REFILLS
     Route: 048

REACTIONS (2)
  - Cardiac disorder [Fatal]
  - Liver disorder [Fatal]
